FAERS Safety Report 22121466 (Version 2)
Quarter: 2023Q1

REPORT INFORMATION
  Report Type: Spontaneous
  Country: US (occurrence: US)
  Receive Date: 20230321
  Receipt Date: 20230331
  Transmission Date: 20230417
  Serious: Yes (Hospitalization)
  Sender: FDA-Public Use
  Company Number: US-RADIUS HEALTH, INC.-2023US001019

PATIENT
  Sex: Female

DRUGS (1)
  1. TYMLOS [Suspect]
     Active Substance: ABALOPARATIDE
     Indication: Product used for unknown indication
     Dosage: 80 MICROGRAM, QD
     Route: 058
     Dates: start: 20230131, end: 202303

REACTIONS (6)
  - Cardiac failure congestive [Unknown]
  - Feeling abnormal [Unknown]
  - Spinal pain [Unknown]
  - Headache [Unknown]
  - Muscle spasms [Unknown]
  - Intentional product misuse [Unknown]
